FAERS Safety Report 9336951 (Version 1)
Quarter: 2013Q2

REPORT INFORMATION
  Report Type: Spontaneous
  Country: IT (occurrence: IT)
  Receive Date: 20130607
  Receipt Date: 20130607
  Transmission Date: 20140414
  Serious: Yes (Death, Hospitalization, Other)
  Sender: FDA-Public Use
  Company Number: IT-BRISTOL-MYERS SQUIBB COMPANY-18958967

PATIENT
  Age: 82 Year
  Sex: Female

DRUGS (6)
  1. COUMADIN TABS 5 MG [Suspect]
     Indication: AORTIC STENOSIS
     Route: 048
     Dates: start: 20020101, end: 20120112
  2. ISOPTIN [Concomitant]
     Dosage: 180 MG TAB
     Route: 048
  3. OMEPRAZEN [Concomitant]
     Dosage: 20 MG CAPS
     Route: 048
  4. ZYLORIC [Concomitant]
     Dosage: 300 MG TAB
     Route: 048
  5. GABAPENTIN [Concomitant]
     Dosage: TEVA?300 MG CAPS
     Route: 048
  6. PERINDOPRIL [Concomitant]
     Dosage: 8 MG TAB
     Route: 048

REACTIONS (5)
  - Cerebral haemorrhage [Fatal]
  - Haemorrhagic stroke [Unknown]
  - Cataract [Unknown]
  - Femur fracture [Unknown]
  - Chronic obstructive pulmonary disease [Unknown]
